FAERS Safety Report 11180292 (Version 1)
Quarter: 2015Q2

REPORT INFORMATION
  Report Type: Spontaneous
  Country: US (occurrence: None)
  Receive Date: 20150522
  Receipt Date: 20150522
  Transmission Date: 20150821
  Serious: No
  Sender: FDA-Public Use
  Company Number: PHEH2015US006903

PATIENT
  Age: 42 Year
  Sex: Female

DRUGS (1)
  1. COSENTYX [Suspect]
     Active Substance: SECUKINUMAB
     Indication: PSORIASIS
     Route: 058
     Dates: start: 20150403

REACTIONS (5)
  - Fatigue [None]
  - Dizziness [None]
  - Oropharyngeal pain [None]
  - Stomatitis [None]
  - Abdominal pain upper [None]

NARRATIVE: CASE EVENT DATE: 20150405
